FAERS Safety Report 10622493 (Version 1)
Quarter: 2014Q4

REPORT INFORMATION
  Report Type: Spontaneous
  Country: US (occurrence: None)
  Receive Date: 20141202
  Receipt Date: 20141202
  Transmission Date: 20150529
  Serious: Yes (Hospitalization)
  Sender: FDA-Public Use
  Company Number: None

PATIENT
  Age: 51 Year
  Sex: Male
  Weight: 75.9 kg

DRUGS (1)
  1. SILTUXIMAB [Suspect]
     Active Substance: SILTUXIMAB
     Indication: CASTLEMAN^S DISEASE
     Route: 042
     Dates: start: 20141020, end: 20141020

REACTIONS (3)
  - Hostility [None]
  - Agitation [None]
  - Anxiety [None]

NARRATIVE: CASE EVENT DATE: 20141020
